FAERS Safety Report 18973054 (Version 2)
Quarter: 2021Q2

REPORT INFORMATION
  Report Type: Spontaneous
  Country: US (occurrence: US)
  Receive Date: 20210305
  Receipt Date: 20210518
  Transmission Date: 20210717
  Serious: No
  Sender: FDA-Public Use
  Company Number: US-GLENMARK PHARMACEUTICALS-2020GMK048194

PATIENT

DRUGS (2)
  1. VIORELE [Suspect]
     Active Substance: DESOGESTREL\ETHINYL ESTRADIOL
     Indication: CONTRACEPTION
     Dosage: 1 DOSAGE FORM, OD
     Route: 048
     Dates: start: 202008
  2. VIORELE [Suspect]
     Active Substance: DESOGESTREL\ETHINYL ESTRADIOL
     Dosage: 1 TABLET ONCE A DAY
     Route: 048
     Dates: start: 2020

REACTIONS (4)
  - Product dose omission issue [Unknown]
  - Intermenstrual bleeding [Recovered/Resolved]
  - Inappropriate schedule of product administration [Unknown]
  - Headache [Recovered/Resolved]

NARRATIVE: CASE EVENT DATE: 2020
